FAERS Safety Report 5484680-8 (Version None)
Quarter: 2007Q4

REPORT INFORMATION
  Report Type: 
  Country: None (occurrence: None)
  Receive Date: 20071012
  Receipt Date: 20071001
  Transmission Date: 20080405
  Serious: Yes (Other)
  Sender: FDA-Public Use
  Company Number: GB-PFIZER INC-2007081393

PATIENT
  Sex: Female

DRUGS (1)
  1. LYRICA [Suspect]
     Indication: EPILEPSY
     Route: 048

REACTIONS (9)
  - DYSKINESIA [None]
  - GAIT DISTURBANCE [None]
  - GENERAL PHYSICAL HEALTH DETERIORATION [None]
  - HYPOAESTHESIA FACIAL [None]
  - MOVEMENT DISORDER [None]
  - MUSCLE SPASMS [None]
  - MYOCLONUS [None]
  - VASODILATATION [None]
  - WEIGHT INCREASED [None]
